FAERS Safety Report 20368801 (Version 8)
Quarter: 2022Q3

REPORT INFORMATION
  Report Type: Report from Study
  Country: US (occurrence: US)
  Receive Date: 20220124
  Receipt Date: 20220804
  Transmission Date: 20221027
  Serious: Yes (Hospitalization, Other)
  Sender: FDA-Public Use
  Company Number: US-NOVARTISTESTPH-NVSC2022US014480

PATIENT
  Age: 69 Year
  Sex: Male

DRUGS (4)
  1. ENTRESTO [Suspect]
     Active Substance: SACUBITRIL\VALSARTAN
     Indication: Cardiac failure
     Dosage: 1 DOSAGE FORM, BID
     Route: 048
     Dates: start: 202110, end: 20220224
  2. ENTRESTO [Suspect]
     Active Substance: SACUBITRIL\VALSARTAN
     Dosage: 1 DOSAGE FORM, BID
     Route: 048
  3. PLAVIX [Suspect]
     Active Substance: CLOPIDOGREL BISULFATE
     Indication: Product used for unknown indication
     Dosage: UNK
     Route: 065
  4. ELIQUIS [Concomitant]
     Active Substance: APIXABAN
     Indication: Thrombosis prophylaxis
     Dosage: UNK
     Route: 065
     Dates: start: 20220124

REACTIONS (12)
  - Limb injury [Recovering/Resolving]
  - Postoperative wound infection [Recovering/Resolving]
  - Atrial fibrillation [Unknown]
  - Hyperphagia [Unknown]
  - Illness [Unknown]
  - Weight decreased [Unknown]
  - Abdominal discomfort [Unknown]
  - Anaemia [Unknown]
  - Speech disorder [Unknown]
  - Somnolence [Unknown]
  - Fatigue [Unknown]
  - Product dose omission in error [Unknown]

NARRATIVE: CASE EVENT DATE: 20220201
